FAERS Safety Report 12243482 (Version 3)
Quarter: 2016Q2

REPORT INFORMATION
  Report Type: Report from Study
  Country: US (occurrence: US)
  Receive Date: 20160406
  Receipt Date: 20160517
  Transmission Date: 20160815
  Serious: Yes (Death, Hospitalization, Other)
  Sender: FDA-Public Use
  Company Number: US-EXELIXIS-CABO-15005747

PATIENT
  Age: 72 Year
  Sex: Male

DRUGS (5)
  1. COMETRIQ [Suspect]
     Active Substance: CABOZANTINIB S-MALATE
     Indication: SALIVARY GLAND CANCER
     Dosage: 60 MG, QD
     Route: 048
     Dates: start: 20150826, end: 2016
  2. REGLAN [Concomitant]
     Active Substance: METOCLOPRAMIDE HYDROCHLORIDE
  3. ZOFRAN [Concomitant]
     Active Substance: ONDANSETRON HYDROCHLORIDE
  4. COMETRIQ [Suspect]
     Active Substance: CABOZANTINIB S-MALATE
     Dosage: 60 MG, QD
     Route: 048
     Dates: start: 2016, end: 201604
  5. MARINOL [Concomitant]
     Active Substance: DRONABINOL

REACTIONS (11)
  - Pyrexia [Unknown]
  - Nausea [Not Recovered/Not Resolved]
  - Decreased appetite [Not Recovered/Not Resolved]
  - Off label use [Unknown]
  - Staphylococcal infection [Unknown]
  - Fatigue [Not Recovered/Not Resolved]
  - Death [Fatal]
  - Vomiting [Unknown]
  - Weight decreased [Unknown]
  - Skin infection [Unknown]
  - Headache [Unknown]

NARRATIVE: CASE EVENT DATE: 20160317
